FAERS Safety Report 13249661 (Version 1)
Quarter: 2017Q1

REPORT INFORMATION
  Report Type: Spontaneous
  Country: US (occurrence: US)
  Receive Date: 20170218
  Receipt Date: 20170218
  Transmission Date: 20170428
  Serious: No
  Sender: FDA-Public Use
  Company Number: US-TEVA-734549ACC

PATIENT
  Age: 16 Year
  Sex: Female
  Weight: 71.73 kg

DRUGS (1)
  1. PLAN B ONE-STEP [Suspect]
     Active Substance: LEVONORGESTREL
     Indication: POST COITAL CONTRACEPTION
     Dates: start: 20170114, end: 20170114

REACTIONS (4)
  - Prescription drug used without a prescription [Unknown]
  - Intentional product misuse [Unknown]
  - Nausea [Recovered/Resolved]
  - Vaginal haemorrhage [Not Recovered/Not Resolved]

NARRATIVE: CASE EVENT DATE: 20170114
